FAERS Safety Report 9060936 (Version 2)
Quarter: 2013Q1

REPORT INFORMATION
  Report Type: Spontaneous
  Country: FR (occurrence: FR)
  Receive Date: 20130213
  Receipt Date: 20130314
  Transmission Date: 20140127
  Serious: Yes (Hospitalization, Other)
  Sender: FDA-Public Use
  Company Number: FR-AMGEN-FRASP2013009150

PATIENT
  Age: 78 Year
  Sex: Female

DRUGS (6)
  1. ENBREL [Suspect]
     Indication: RHEUMATOID ARTHRITIS
     Dosage: 25 MG EVERY 5 DAYS
     Route: 058
     Dates: start: 200905, end: 201009
  2. ENBREL [Suspect]
     Dosage: 25 MG EVERY 5 DAYS
     Route: 058
     Dates: start: 201104, end: 201212
  3. DOLIPRANE [Concomitant]
     Dosage: UNK
  4. SPECIAFOLDINE [Concomitant]
     Dosage: UNK
  5. METHOTREXATE [Concomitant]
     Dosage: 12.5 MG, UNK
  6. VITAMIN D /00107901/ [Concomitant]
     Dosage: UNK

REACTIONS (2)
  - Lung adenocarcinoma stage II [Recovering/Resolving]
  - Pulmonary tuberculosis [Unknown]
